FAERS Safety Report 6690895-3 (Version None)
Quarter: 2010Q2

REPORT INFORMATION
  Report Type: 
  Country: None (occurrence: None)
  Receive Date: 20100421
  Receipt Date: 20100420
  Transmission Date: 20101027
  Serious: Yes (Other)
  Sender: FDA-Public Use
  Company Number: DE-WYE-G01440008

PATIENT
  Sex: Male
  Weight: 72 kg

DRUGS (7)
  1. TYGACIL [Suspect]
     Indication: DIABETIC FOOT INFECTION
     Route: 042
     Dates: start: 20080310, end: 20080310
  2. TYGACIL [Suspect]
     Route: 042
     Dates: start: 20080311, end: 20080313
  3. DOXYCYCLINE [Concomitant]
     Route: 048
     Dates: start: 20080305, end: 20080310
  4. GLUCOCORTICOIDS [Concomitant]
     Indication: DERMATITIS ALLERGIC
     Dosage: UNKNOWN
     Route: 061
  5. LASIX [Concomitant]
  6. PLAVIX [Concomitant]
     Indication: PERIPHERAL ARTERIAL OCCLUSIVE DISEASE
     Route: 048
  7. ACETYLSALICYLIC ACID [Concomitant]
     Indication: PERIPHERAL ARTERIAL OCCLUSIVE DISEASE
     Route: 048

REACTIONS (4)
  - CONDITION AGGRAVATED [None]
  - DERMATITIS ALLERGIC [None]
  - DYSPNOEA [None]
  - GENERAL PHYSICAL HEALTH DETERIORATION [None]
